FAERS Safety Report 5781186-3 (Version None)
Quarter: 2008Q2

REPORT INFORMATION
  Report Type: 
  Country: None (occurrence: None)
  Receive Date: 20080618
  Receipt Date: 20080609
  Transmission Date: 20081010
  Serious: Yes (Death)
  Sender: FDA-Public Use
  Company Number: 08H-163-0314395-00

PATIENT
  Age: 85 Year
  Sex: Female

DRUGS (1)
  1. DOBUTAMINE AND DEXTROSE SOLUTION (DOBUTAMINE/DEXTROSE SOLUTION) (DOBUT [Suspect]
     Indication: CARDIAC STRESS TEST
     Dosage: 40 UG/MIN,

REACTIONS (5)
  - CARDIAC FAILURE CONGESTIVE [None]
  - ELECTROMECHANICAL DISSOCIATION [None]
  - HEART RATE INCREASED [None]
  - LEFT VENTRICLE OUTFLOW TRACT OBSTRUCTION [None]
  - STRESS CARDIOMYOPATHY [None]
